FAERS Safety Report 5306411-4 (Version None)
Quarter: 2007Q2

REPORT INFORMATION
  Report Type: 
  Country: None (occurrence: None)
  Receive Date: 20070424
  Receipt Date: 20070413
  Transmission Date: 20071010
  Serious: Yes (Hospitalization)
  Sender: FDA-Public Use
  Company Number: PHEH2007US05414

PATIENT
  Age: 56 Year
  Sex: Female
  Weight: 114.74 kg

DRUGS (13)
  1. ZELNORM [Suspect]
     Indication: CONSTIPATION
     Dosage: 6 MG, BID
     Dates: start: 20060101, end: 20070410
  2. VALIUM [Concomitant]
     Dosage: 0.5 MG, UNK
  3. PROZAC [Concomitant]
     Dosage: 20 MG, UNK
  4. ABILIFY [Concomitant]
     Dosage: 30 MG,
  5. OXYTROL [Concomitant]
  6. KLOR-CON [Concomitant]
     Dosage: 20 MG, Q96H
  7. LASIX [Concomitant]
  8. SYNTHROID [Concomitant]
     Dosage: 25 MG, UNK
  9. ULTRAM [Concomitant]
  10. ASPIRIN [Concomitant]
  11. QUININE [Concomitant]
     Dosage: 325 MG, UNK
  12. VITAMIN B6 [Concomitant]
  13. VITAMIN B-12 [Concomitant]

REACTIONS (6)
  - AMNESIA [None]
  - CARPAL TUNNEL SYNDROME [None]
  - CEREBROVASCULAR ACCIDENT [None]
  - CONFUSIONAL STATE [None]
  - DISORIENTATION [None]
  - HYPOAESTHESIA [None]
